FAERS Safety Report 5850313-1 (Version None)
Quarter: 2008Q3

REPORT INFORMATION
  Report Type: 
  Country: None (occurrence: None)
  Receive Date: 20080819
  Receipt Date: 20080808
  Transmission Date: 20090109
  Serious: Yes (Hospitalization, Disabling, Other)
  Sender: FDA-Public Use
  Company Number: CH-GENENTECH-262647

PATIENT
  Sex: Male

DRUGS (7)
  1. MABTHERA [Suspect]
     Indication: NON-HODGKIN'S LYMPHOMA
     Dosage: 375 MG/M2, UNK
     Route: 042
     Dates: start: 20080212, end: 20080423
  2. FLUDARABINE [Concomitant]
     Indication: NON-HODGKIN'S LYMPHOMA
     Dates: start: 20080201, end: 20080301
  3. NOVANTRONE [Concomitant]
     Indication: NON-HODGKIN'S LYMPHOMA
     Dates: start: 20080201, end: 20080401
  4. DEXAMETHASONE TAB [Concomitant]
     Indication: NON-HODGKIN'S LYMPHOMA
     Dosage: 375 MG/M2, UNK
     Route: 042
     Dates: start: 20080201, end: 20080401
  5. ACETAMINOPHEN [Concomitant]
     Indication: DRUG USE FOR UNKNOWN INDICATION
     Dates: start: 20080212, end: 20080423
  6. TAVEGYL [Concomitant]
     Indication: DRUG USE FOR UNKNOWN INDICATION
  7. CORTICOSTEROID NOS [Concomitant]

REACTIONS (2)
  - ALVEOLITIS [None]
  - LUNG DISORDER [None]
